FAERS Safety Report 20644440 (Version 1)
Quarter: 2022Q1

REPORT INFORMATION
  Report Type: Spontaneous
  Country: US (occurrence: US)
  Receive Date: 20220328
  Receipt Date: 20220328
  Transmission Date: 20220424
  Serious: No
  Sender: FDA-Public Use
  Company Number: US-Cardinal Health 414-CAHLYMPH-AE-22-5

PATIENT
  Sex: Female

DRUGS (2)
  1. Blue dye [Concomitant]
  2. LYMPHOSEEK [Suspect]
     Active Substance: TECHNETIUM TC-99M TILMANOCEPT
     Indication: Lymphatic mapping
     Route: 023
     Dates: start: 20220204, end: 20220204

REACTIONS (1)
  - Drug ineffective [Recovered/Resolved]

NARRATIVE: CASE EVENT DATE: 20220204
